FAERS Safety Report 5099556-8 (Version None)
Quarter: 2006Q3

REPORT INFORMATION
  Report Type: 
  Country: None (occurrence: None)
  Receive Date: 20060906
  Receipt Date: 20060822
  Transmission Date: 20061208
  Serious: Yes (Other)
  Sender: FDA-Public Use
  Company Number: 2006104857

PATIENT
  Age: 27 Year
  Sex: Female

DRUGS (2)
  1. DILANTIN [Suspect]
     Indication: EPILEPSY
     Dosage: 500 MG, ORAL
     Route: 048
  2. DEPAKOTE [Suspect]
     Indication: EPILEPSY
     Dosage: 2500 MG, ORAL
     Route: 048

REACTIONS (4)
  - BRAIN DEATH [None]
  - DEATH NEONATAL [None]
  - DRUG EXPOSURE DURING PREGNANCY [None]
  - PREMATURE SEPARATION OF PLACENTA [None]
